FAERS Safety Report 6318480-3 (Version None)
Quarter: 2009Q3

REPORT INFORMATION
  Report Type: 
  Country: None (occurrence: None)
  Receive Date: 20090821
  Receipt Date: 20090817
  Transmission Date: 20100115
  Serious: Yes (Hospitalization)
  Sender: FDA-Public Use
  Company Number: JP-BRISTOL-MYERS SQUIBB COMPANY-14714299

PATIENT
  Age: 61 Year
  Sex: Female
  Weight: 66 kg

DRUGS (2)
  1. TAXOL [Suspect]
     Indication: LUNG ADENOCARCINOMA
     Dosage: THERAPY DURATION:1 DAY
     Route: 041
     Dates: start: 20090707
  2. PARAPLATIN [Suspect]
     Indication: LUNG ADENOCARCINOMA
     Dosage: THERAPY DURATION:1 DAY
     Route: 041
     Dates: start: 20090707

REACTIONS (1)
  - INAPPROPRIATE ANTIDIURETIC HORMONE SECRETION [None]
